FAERS Safety Report 8949104 (Version 1)
Quarter: 2012Q4

REPORT INFORMATION
  Report Type: 
  Country: US (occurrence: US)
  Receive Date: 20121206
  Receipt Date: 20121206
  Transmission Date: 20130627
  Serious: No
  Sender: FDA-Public Use
  Company Number: US-BAYER-2012-127963

PATIENT
  Age: 90 Year
  Sex: Female
  Weight: 52.15 kg

DRUGS (5)
  1. ALEVE CAPLET/TABLET,MIDOL EXTENDED RELIEF CAPLET [Suspect]
     Dosage: 1 DF, PRN
     Route: 048
     Dates: start: 2012
  2. ASPIRIN [Concomitant]
  3. TYLENOL NOS [Concomitant]
  4. MUPIROCIN [Concomitant]
  5. LISINOPRIL [Concomitant]

REACTIONS (1)
  - Diarrhoea [Not Recovered/Not Resolved]
